FAERS Safety Report 19188970 (Version 1)
Quarter: 2021Q2

REPORT INFORMATION
  Report Type: Spontaneous
  Country: US (occurrence: US)
  Receive Date: 20210427
  Receipt Date: 20210427
  Transmission Date: 20210717
  Serious: No
  Sender: FDA-Public Use
  Company Number: None

PATIENT
  Age: 39 Year
  Sex: Female
  Weight: 74.25 kg

DRUGS (13)
  1. VITAMIN B12 [Concomitant]
     Active Substance: CYANOCOBALAMIN
  2. RELPAX [Concomitant]
     Active Substance: ELETRIPTAN HYDROBROMIDE
  3. HYDROCODONE [Concomitant]
     Active Substance: HYDROCODONE
  4. ZOFRAN [Concomitant]
     Active Substance: ONDANSETRON HYDROCHLORIDE
  5. STADOL [Concomitant]
     Active Substance: BUTORPHANOL TARTRATE
  6. CALCIUM SUPPLEMENT [Concomitant]
     Active Substance: CALCIUM
  7. PRILOSEC [Concomitant]
     Active Substance: OMEPRAZOLE MAGNESIUM
  8. ZINC. [Concomitant]
     Active Substance: ZINC
  9. ZOLOFT [Concomitant]
     Active Substance: SERTRALINE HYDROCHLORIDE
  10. BARIATRIC ADVANTAGE MULTIVITAMIN [Concomitant]
  11. EMGALITY [Suspect]
     Active Substance: GALCANEZUMAB-GNLM
     Indication: MIGRAINE
     Dosage: ?          QUANTITY:1 INJECTION(S);OTHER FREQUENCY:ONCE/MONTH;?
     Route: 058
     Dates: start: 20200420
  12. TRAMADOL. [Concomitant]
     Active Substance: TRAMADOL
  13. VITAMIN B [Concomitant]
     Active Substance: VITAMIN B

REACTIONS (2)
  - Injection site pruritus [None]
  - Injection site swelling [None]

NARRATIVE: CASE EVENT DATE: 20210427
